FAERS Safety Report 21213933 (Version 1)
Quarter: 2022Q3

REPORT INFORMATION
  Report Type: Spontaneous
  Country: US (occurrence: None)
  Receive Date: 20220816
  Receipt Date: 20220816
  Transmission Date: 20221026
  Serious: Yes (Other)
  Sender: FDA-Public Use
  Company Number: US-Hikma Pharmaceuticals-US-H14001-22-02009

PATIENT
  Age: 52 Year
  Sex: Male

DRUGS (17)
  1. AMIODARONE [Suspect]
     Active Substance: AMIODARONE
     Indication: Ventricular tachycardia
     Dosage: UNKNOWN
     Route: 041
  2. AMIODARONE [Suspect]
     Active Substance: AMIODARONE
     Route: 065
  3. AMIODARONE [Suspect]
     Active Substance: AMIODARONE
     Dosage: 0.5 MG/MIN
     Route: 041
  4. AMIODARONE [Suspect]
     Active Substance: AMIODARONE
     Route: 042
  5. LIDOCAINE [Concomitant]
     Active Substance: LIDOCAINE
     Indication: Ventricular tachycardia
     Dosage: UNKNOWN
     Route: 041
  6. FENTANYL [Concomitant]
     Active Substance: FENTANYL
     Indication: Induction of anaesthesia
     Dosage: HIGH DOSE
     Route: 065
  7. ETOMIDATE [Concomitant]
     Active Substance: ETOMIDATE
     Indication: Induction of anaesthesia
     Dosage: LOW DOSE
     Route: 065
  8. MEXILETINE [Concomitant]
     Active Substance: MEXILETINE
     Indication: Ventricular tachycardia
     Dosage: UNKNOWN
     Route: 065
  9. MEXILETINE [Concomitant]
     Active Substance: MEXILETINE
     Indication: Cardiac failure
     Route: 065
  10. ASPIRIN [Concomitant]
     Active Substance: ASPIRIN
     Indication: Cardiac failure
     Route: 065
  11. BUMETANIDE [Concomitant]
     Active Substance: BUMETANIDE
     Indication: Cardiac failure
     Route: 065
  12. MELATONIN [Concomitant]
     Active Substance: MELATONIN
     Indication: Cardiac failure
     Route: 065
  13. METOLAZONE [Concomitant]
     Active Substance: METOLAZONE
     Indication: Cardiac failure
     Route: 065
  14. METOPROLOL SUCCINATE [Concomitant]
     Active Substance: METOPROLOL SUCCINATE
     Indication: Cardiac failure
     Route: 065
  15. POTASSIUM CHLORIDE [Concomitant]
     Active Substance: POTASSIUM CHLORIDE
     Indication: Cardiac failure
     Route: 065
  16. SACUBITRIL\VALSARTAN [Concomitant]
     Active Substance: SACUBITRIL\VALSARTAN
     Indication: Cardiac failure
     Dosage: 24-26 MG HALF TAB
     Route: 065
  17. EPINEPHRINE [Concomitant]
     Active Substance: EPINEPHRINE
     Indication: Product used for unknown indication
     Dosage: 0.02 MCG/KG/MIN.
     Route: 041

REACTIONS (3)
  - Parkinsonism [Recovered/Resolved]
  - Intention tremor [Recovering/Resolving]
  - Condition aggravated [Recovered/Resolved]
